FAERS Safety Report 20775853 (Version 2)
Quarter: 2022Q2

REPORT INFORMATION
  Report Type: Report from Study
  Country: US (occurrence: US)
  Receive Date: 20220502
  Receipt Date: 20220515
  Transmission Date: 20220721
  Serious: Yes (Hospitalization, Other)
  Sender: FDA-Public Use
  Company Number: US-BRISTOL-MYERS SQUIBB COMPANY-BMS-2022-002110

PATIENT
  Age: 63 Year
  Sex: Male
  Weight: 80.5 kg

DRUGS (2)
  1. NIVOLUMAB [Suspect]
     Active Substance: NIVOLUMAB
     Indication: Ocular melanoma
     Dosage: 240 MILLIGRAM
     Route: 065
     Dates: start: 20210928, end: 20220201
  2. IPILIMUMAB [Suspect]
     Active Substance: IPILIMUMAB
     Indication: Ocular melanoma
     Dosage: 1 MILLIGRAM/KILOGRAM
     Route: 065
     Dates: start: 20210928, end: 20220201

REACTIONS (2)
  - Immune-mediated enterocolitis [Recovered/Resolved]
  - Enterocolitis [Recovered/Resolved]

NARRATIVE: CASE EVENT DATE: 20211107
